FAERS Safety Report 8874984 (Version 1)
Quarter: 2012Q4

REPORT INFORMATION
  Report Type: 
  Country: US (occurrence: US)
  Receive Date: 20121023
  Receipt Date: 20121023
  Transmission Date: 20130627
  Serious: Yes (Death, Hospitalization)
  Sender: FDA-Public Use
  Company Number: US-ROXANE LABORATORIES, INC.-2012-RO-02068RO

PATIENT
  Age: 81 Year

DRUGS (3)
  1. PREDNISONE [Suspect]
  2. VELCADE [Suspect]
  3. MELPHALAN [Suspect]

REACTIONS (5)
  - Multi-organ failure [Fatal]
  - Asthenia [Unknown]
  - Fatigue [Unknown]
  - Pyrexia [Unknown]
  - Dehydration [Unknown]
